FAERS Safety Report 18880816 (Version 1)
Quarter: 2021Q1

REPORT INFORMATION
  Report Type: Spontaneous
  Country: CH (occurrence: CH)
  Receive Date: 20210212
  Receipt Date: 20210212
  Transmission Date: 20210420
  Serious: Yes (Other)
  Sender: FDA-Public Use
  Company Number: CH-SUN PHARMACEUTICAL INDUSTRIES LTD-2021RR-280503

PATIENT
  Age: 47 Year
  Sex: Female

DRUGS (2)
  1. SPIRONOLACTONE. [Suspect]
     Active Substance: SPIRONOLACTONE
     Indication: RENAL HYPERTENSION
     Dosage: 100 MILLIGRAM, DAILY
     Route: 065
     Dates: start: 2002
  2. RAMIPRIL. [Suspect]
     Active Substance: RAMIPRIL
     Indication: RENAL HYPERTENSION
     Dosage: 2.5 MILLIGRAM, DAILY
     Route: 065
     Dates: start: 2002

REACTIONS (3)
  - Hyperaldosteronism [Recovering/Resolving]
  - Renin increased [Recovering/Resolving]
  - Drug ineffective [Recovering/Resolving]

NARRATIVE: CASE EVENT DATE: 200802
